FAERS Safety Report 17560318 (Version 1)
Quarter: 2020Q1

REPORT INFORMATION
  Report Type: Spontaneous
  Country: US (occurrence: US)
  Receive Date: 20200311
  Receipt Date: 20200311
  Transmission Date: 20200409
  Serious: Yes (Hospitalization)
  Sender: FDA-Public Use
  Company Number: None

PATIENT
  Age: 63 Year
  Sex: Male

DRUGS (1)
  1. GRANIX [Suspect]
     Active Substance: TBO-FILGRASTIM
     Indication: AGRANULOCYTOSIS
     Dosage: ?          OTHER STRENGTH:480MCG/0.8ML;OTHER FREQUENCY:DAYS 1-3 EVERY 21 ;?
     Route: 058
     Dates: start: 20181002

REACTIONS (1)
  - Internal haemorrhage [None]

NARRATIVE: CASE EVENT DATE: 20200202
